FAERS Safety Report 12552119 (Version 1)
Quarter: 2016Q3

REPORT INFORMATION
  Report Type: Spontaneous
  Country: US (occurrence: None)
  Receive Date: 20160712
  Receipt Date: 20160712
  Transmission Date: 20161109
  Serious: No
  Sender: FDA-Public Use
  Company Number: None

PATIENT
  Age: 64 Year
  Sex: Male

DRUGS (1)
  1. HYDROCORTISONE. [Suspect]
     Active Substance: HYDROCORTISONE
     Route: 048
     Dates: start: 20160617

REACTIONS (2)
  - Product substitution issue [None]
  - Adrenocortical insufficiency acute [None]

NARRATIVE: CASE EVENT DATE: 20160617
